FAERS Safety Report 15928304 (Version 1)
Quarter: 2019Q1

REPORT INFORMATION
  Report Type: Spontaneous
  Country: US (occurrence: US)
  Receive Date: 20190206
  Receipt Date: 20190206
  Transmission Date: 20190417
  Serious: Yes (Hospitalization, Other)
  Sender: FDA-Public Use
  Company Number: US-OTSUKA-2018_025413

PATIENT
  Sex: Male

DRUGS (9)
  1. ABILIFY [Suspect]
     Active Substance: ARIPIPRAZOLE
     Indication: SCHIZOPHRENIA
     Dosage: 20 MG, QD
     Route: 065
     Dates: start: 201306, end: 201409
  2. ABILIFY [Suspect]
     Active Substance: ARIPIPRAZOLE
     Indication: ALCOHOL ABUSE
  3. ABILIFY [Suspect]
     Active Substance: ARIPIPRAZOLE
     Indication: ANXIETY
  4. ABILIFY [Suspect]
     Active Substance: ARIPIPRAZOLE
     Indication: PSYCHOTIC DISORDER
  5. ABILIFY [Suspect]
     Active Substance: ARIPIPRAZOLE
     Indication: SOCIAL ANXIETY DISORDER
  6. ABILIFY [Suspect]
     Active Substance: ARIPIPRAZOLE
     Indication: OBSESSIVE-COMPULSIVE DISORDER
  7. ABILIFY [Suspect]
     Active Substance: ARIPIPRAZOLE
     Indication: INSOMNIA
  8. ABILIFY [Suspect]
     Active Substance: ARIPIPRAZOLE
     Indication: MAJOR DEPRESSION
  9. ABILIFY [Suspect]
     Active Substance: ARIPIPRAZOLE
     Indication: POST-TRAUMATIC STRESS DISORDER

REACTIONS (14)
  - Compulsive hoarding [Not Recovered/Not Resolved]
  - Compulsive sexual behaviour [Not Recovered/Not Resolved]
  - Bankruptcy [Unknown]
  - Suicide attempt [Not Recovered/Not Resolved]
  - Economic problem [Unknown]
  - Product use in unapproved indication [Unknown]
  - Suicidal ideation [Not Recovered/Not Resolved]
  - Compulsive shopping [Not Recovered/Not Resolved]
  - Gambling disorder [Not Recovered/Not Resolved]
  - Divorced [Unknown]
  - Loss of employment [Unknown]
  - Sexually transmitted disease [Unknown]
  - Mental disorder [Unknown]
  - Obsessive-compulsive disorder [Not Recovered/Not Resolved]

NARRATIVE: CASE EVENT DATE: 2013
